FAERS Safety Report 4293388-6 (Version None)
Quarter: 2004Q1

REPORT INFORMATION
  Report Type: 
  Country: None (occurrence: None)
  Receive Date: 20040126
  Receipt Date: 20031104
  Transmission Date: 20041129
  Serious: No
  Sender: FDA-Public Use
  Company Number: USA031151677

PATIENT
  Age: 50 Year
  Sex: Female
  Weight: 75 kg

DRUGS (10)
  1. FORTEO [Suspect]
     Indication: OSTEOPOROSIS
     Dates: start: 20031020
  2. NEXIUM [Concomitant]
  3. REGLAN [Concomitant]
  4. SINGULAIR [Concomitant]
  5. ZYRETC (CETIRIZINE HYDROCHLORIDE) [Concomitant]
  6. VIOXX [Concomitant]
  7. LEVSIN (HYOSCYAMINE SULFATE) [Concomitant]
  8. CALCIUM WITH VITAMIN D [Concomitant]
  9. SPIRONOLACTONE [Concomitant]
  10. PAMINE (HYOSCINE METHOBROMIDE) [Concomitant]

REACTIONS (7)
  - DIARRHOEA [None]
  - INJECTION SITE ERYTHEMA [None]
  - INJECTION SITE HAEMORRHAGE [None]
  - INJECTION SITE URTICARIA [None]
  - NAUSEA [None]
  - PRURITUS [None]
  - VOMITING [None]
